FAERS Safety Report 14634148 (Version 1)
Quarter: 2018Q1

REPORT INFORMATION
  Report Type: Report from Study
  Country: US (occurrence: US)
  Receive Date: 20180314
  Receipt Date: 20180314
  Transmission Date: 20180509
  Serious: Yes (Other)
  Sender: FDA-Public Use
  Company Number: US-AMGEN-USASL2018032956

PATIENT
  Age: 33 Year
  Sex: Male

DRUGS (3)
  1. ENBREL [Suspect]
     Active Substance: ETANERCEPT
     Indication: ANKYLOSING SPONDYLITIS
     Dosage: UNK, QWK
     Route: 058
     Dates: start: 2011, end: 2012
  2. ENBREL [Suspect]
     Active Substance: ETANERCEPT
     Dosage: UNK, QWK
     Route: 058
     Dates: start: 2013, end: 2015
  3. ENBREL [Suspect]
     Active Substance: ETANERCEPT
     Dosage: UNK, QWK
     Route: 058
     Dates: start: 2017, end: 2018

REACTIONS (5)
  - Intentional product misuse [Unknown]
  - Hyperlipidaemia [Recovered/Resolved]
  - Hepatic steatosis [Unknown]
  - Ankylosing spondylitis [Unknown]
  - Ligament sprain [Unknown]

NARRATIVE: CASE EVENT DATE: 2012
